FAERS Safety Report 12252902 (Version 1)
Quarter: 2016Q2

REPORT INFORMATION
  Report Type: Spontaneous
  Country: US (occurrence: US)
  Receive Date: 20160411
  Receipt Date: 20160411
  Transmission Date: 20160815
  Serious: Yes (Other)
  Sender: FDA-Public Use
  Company Number: US-BRISTOL-MYERS SQUIBB COMPANY-BMS-2016-025150

PATIENT
  Sex: Female

DRUGS (3)
  1. OPDIVO [Suspect]
     Active Substance: NIVOLUMAB
     Indication: PRODUCT USED FOR UNKNOWN INDICATION
     Dosage: 1 DF, Q2WK
     Route: 065
     Dates: start: 20160212
  2. OPDIVO [Suspect]
     Active Substance: NIVOLUMAB
     Dosage: 1 DF, Q2WK
     Route: 065
     Dates: start: 20160226
  3. OPDIVO [Suspect]
     Active Substance: NIVOLUMAB
     Dosage: 1 DF, Q2WK
     Route: 065
     Dates: start: 20160311

REACTIONS (1)
  - Nephritis [Unknown]
